FAERS Safety Report 14563311 (Version 1)
Quarter: 2018Q1

REPORT INFORMATION
  Report Type: Spontaneous
  Country: JP (occurrence: JP)
  Receive Date: 20180222
  Receipt Date: 20180222
  Transmission Date: 20180509
  Serious: Yes (Other)
  Sender: FDA-Public Use
  Company Number: PHHY2018JP026559

PATIENT
  Age: 16 Year
  Sex: Female

DRUGS (5)
  1. DDAVP [Suspect]
     Active Substance: DESMOPRESSIN ACETATE
     Indication: GESTATIONAL DIABETES
     Route: 048
  2. RITODRINE [Suspect]
     Active Substance: RITODRINE
     Indication: PREMATURE LABOUR
     Route: 065
  3. HYDROXYPROGESTERONE [Suspect]
     Active Substance: HYDROXYPROGESTERONE
     Indication: PREMATURE LABOUR
     Route: 065
  4. MAGNESIUM SULFAT [Suspect]
     Active Substance: MAGNESIUM SULFATE
     Indication: PREMATURE LABOUR
     Route: 065
  5. BETAMETHASONE. [Suspect]
     Active Substance: BETAMETHASONE
     Indication: PREMATURE LABOUR
     Route: 065

REACTIONS (3)
  - Product use in unapproved indication [Unknown]
  - Premature delivery [Unknown]
  - Maternal exposure during pregnancy [Unknown]
